FAERS Safety Report 4555878-8 (Version None)
Quarter: 2005Q1

REPORT INFORMATION
  Report Type: 
  Country: None (occurrence: None)
  Receive Date: 20050119
  Receipt Date: 20041202
  Transmission Date: 20050727
  Serious: Yes (Disabling)
  Sender: FDA-Public Use
  Company Number: GB-ROCHE-387995

PATIENT
  Age: 43 Year
  Weight: 54 kg

DRUGS (2)
  1. XELODA [Suspect]
     Indication: BREAST CANCER
     Dosage: TWICE DAILY FOR 14 DAYS.
     Route: 048
     Dates: start: 20041104
  2. XELODA [Suspect]
     Route: 048

REACTIONS (5)
  - CARDIOTOXICITY [None]
  - CHEST PAIN [None]
  - PERIPHERAL COLDNESS [None]
  - POOR PERIPHERAL CIRCULATION [None]
  - RECTAL HAEMORRHAGE [None]
